FAERS Safety Report 6088212-5 (Version None)
Quarter: 2009Q1

REPORT INFORMATION
  Report Type: 
  Country: None (occurrence: None)
  Receive Date: 20090224
  Receipt Date: 20090126
  Transmission Date: 20090719
  Serious: No
  Sender: FDA-Public Use
  Company Number: US-JNJFOC-20090106891

PATIENT
  Sex: Female

DRUGS (1)
  1. INVEGA [Suspect]
     Indication: BIPOLAR DISORDER

REACTIONS (5)
  - DYSPNOEA [None]
  - FEELING HOT [None]
  - LOSS OF CONSCIOUSNESS [None]
  - PALPITATIONS [None]
  - SWOLLEN TONGUE [None]
